FAERS Safety Report 5457357-2 (Version None)
Quarter: 2007Q3

REPORT INFORMATION
  Report Type: 
  Country: None (occurrence: None)
  Receive Date: 20070918
  Receipt Date: 20070214
  Transmission Date: 20080115
  Serious: No
  Sender: FDA-Public Use
  Company Number: US-ASTRAZENECA-2007UW02941

PATIENT
  Age: 34 Year
  Sex: Female
  Weight: 65.8 kg

DRUGS (2)
  1. SEROQUEL [Suspect]
     Indication: BIPOLAR I DISORDER
     Route: 048
     Dates: start: 20070213
  2. XANAX [Concomitant]
     Indication: ANXIETY

REACTIONS (1)
  - ILL-DEFINED DISORDER [None]
